FAERS Safety Report 10004211 (Version 2)
Quarter: 2014Q1

REPORT INFORMATION
  Report Type: Spontaneous
  Country: US (occurrence: US)
  Receive Date: 20140312
  Receipt Date: 20140313
  Transmission Date: 20141002
  Serious: Yes (Other)
  Sender: FDA-Public Use
  Company Number: US-PFIZER INC-2014070620

PATIENT
  Age: 26 Year
  Sex: Female
  Weight: 86.17 kg

DRUGS (7)
  1. EFFEXOR XR [Suspect]
     Indication: DEPRESSION
     Dosage: 75 MG (TWO CAPSULES OF 37.5MG), 1X/DAY
     Route: 048
     Dates: start: 201401, end: 20140308
  2. EFFEXOR XR [Suspect]
     Indication: ANXIETY
  3. METFORMIN [Concomitant]
     Dosage: 1000 MG, 2X/DAY
  4. LUTERA [Concomitant]
     Indication: CONTRACEPTION
     Dosage: UNK
  5. CLONAZEPAM [Concomitant]
     Dosage: UNK
  6. ASPIRIN [Concomitant]
     Indication: CARDIAC ANEURYSM
     Dosage: 81 MG, UNK
  7. BUPROPION [Concomitant]
     Dosage: 300 MG, 1X/DAY

REACTIONS (3)
  - Spinal disorder [Unknown]
  - Dizziness [Unknown]
  - Feeling abnormal [Unknown]
